FAERS Safety Report 25425809 (Version 1)
Quarter: 2025Q2

REPORT INFORMATION
  Report Type: Report from Study
  Country: US (occurrence: US)
  Receive Date: 20250611
  Receipt Date: 20250611
  Transmission Date: 20250717
  Serious: Yes (Other)
  Sender: ALEXION PHARMACEUTICALS
  Company Number: US-AstraZeneca-CH-00887403A

PATIENT

DRUGS (4)
  1. OSIMERTINIB [Suspect]
     Active Substance: OSIMERTINIB
     Route: 065
  2. DIETARY SUPPLEMENT\HERBALS [Concomitant]
     Active Substance: DIETARY SUPPLEMENT\HERBALS
     Route: 065
  3. Detox [Concomitant]
     Route: 065
  4. Sulfurzyme [Concomitant]
     Route: 065

REACTIONS (4)
  - Colitis microscopic [Unknown]
  - Dizziness [Unknown]
  - Muscle spasms [Unknown]
  - Myalgia [Unknown]
